FAERS Safety Report 5311696-4 (Version None)
Quarter: 2007Q2

REPORT INFORMATION
  Report Type: 
  Country: None (occurrence: None)
  Receive Date: 20070426
  Receipt Date: 20070426
  Transmission Date: 20071010
  Serious: No
  Sender: FDA-Public Use
  Company Number: None

PATIENT
  Age: 58 Year
  Sex: Female
  Weight: 108.8633 kg

DRUGS (2)
  1. CIPROFLOXACIN [Suspect]
     Indication: BRONCHITIS
     Dosage: 1 TABLE TWICE A DAY PO
     Route: 048
     Dates: start: 20070423, end: 20070425
  2. CIPROFLOXACIN [Suspect]
     Indication: DIVERTICULITIS
     Dosage: 1 TABLE TWICE A DAY PO
     Route: 048
     Dates: start: 20070423, end: 20070425

REACTIONS (15)
  - ABNORMAL DREAMS [None]
  - ANOREXIA [None]
  - ANXIETY [None]
  - DIZZINESS [None]
  - DYSPNOEA [None]
  - HEADACHE [None]
  - INSOMNIA [None]
  - MALAISE [None]
  - NAUSEA [None]
  - NIGHTMARE [None]
  - PYREXIA [None]
  - RESTLESSNESS [None]
  - STOMACH DISCOMFORT [None]
  - VISUAL DISTURBANCE [None]
  - VOMITING [None]
